FAERS Safety Report 16859050 (Version 2)
Quarter: 2019Q4

REPORT INFORMATION
  Report Type: Spontaneous
  Country: JP (occurrence: JP)
  Receive Date: 20190926
  Receipt Date: 20191006
  Transmission Date: 20200122
  Serious: Yes (Hospitalization)
  Sender: FDA-Public Use
  Company Number: JP-NOVOPROD-685371

PATIENT
  Age: 64 Year
  Sex: Female
  Weight: 55 kg

DRUGS (7)
  1. NOVORAPID [Suspect]
     Active Substance: INSULIN ASPART
     Dosage: 18 IU, QD (6-6-6U/DAY)
     Route: 058
     Dates: start: 201809
  2. EQUA [Concomitant]
     Active Substance: VILDAGLIPTIN
     Indication: TYPE 2 DIABETES MELLITUS
     Dosage: UNK
     Route: 048
     Dates: start: 201812, end: 20190107
  3. NOVORAPID [Suspect]
     Active Substance: INSULIN ASPART
     Indication: TYPE 2 DIABETES MELLITUS
     Dosage: 18 IU, QD (6-6-6U/DAY)
     Route: 058
     Dates: start: 2011
  4. RYZODEG 70/30 [Concomitant]
     Active Substance: INSULIN ASPART\INSULIN DEGLUDEC
     Indication: TYPE 2 DIABETES MELLITUS
     Dosage: 16 IU, QD
     Dates: start: 201804
  5. RYZODEG 70/30 [Concomitant]
     Active Substance: INSULIN ASPART\INSULIN DEGLUDEC
     Dosage: 20 IU, QD
     Dates: start: 201807, end: 20190107
  6. NOVORAPID [Suspect]
     Active Substance: INSULIN ASPART
     Dosage: 20 IU, QD (6-6-8U/DAY)
     Route: 058
     Dates: start: 201812, end: 20190107
  7. NOVORAPID [Suspect]
     Active Substance: INSULIN ASPART
     Dosage: 14 IU, QD (6-6-4U/DAY)
     Route: 058
     Dates: start: 201807

REACTIONS (2)
  - Road traffic accident [Unknown]
  - Hypoglycaemia [Recovered/Resolved]

NARRATIVE: CASE EVENT DATE: 20181226
